FAERS Safety Report 6165539-X (Version None)
Quarter: 2009Q2

REPORT INFORMATION
  Report Type: 
  Country: None (occurrence: None)
  Receive Date: 20090423
  Receipt Date: 20090225
  Transmission Date: 20091009
  Serious: No
  Sender: FDA-Public Use
  Company Number: US-BRISTOL-MYERS SQUIBB COMPANY-14522882

PATIENT
  Sex: Male

DRUGS (2)
  1. ERBITUX [Suspect]
     Dosage: OFF FOR TWO WEEKS
  2. CARBOPLATIN [Suspect]
     Indication: HEAD AND NECK CANCER

REACTIONS (1)
  - BLOOD COUNT ABNORMAL [None]
